FAERS Safety Report 10082711 (Version 1)
Quarter: 2014Q2

REPORT INFORMATION
  Report Type: Spontaneous
  Country: US (occurrence: US)
  Receive Date: 20140416
  Receipt Date: 20140416
  Transmission Date: 20141212
  Serious: No
  Sender: FDA-Public Use
  Company Number: US-GILEAD-2014-0099589

PATIENT
  Age: 35 Year
  Sex: Male

DRUGS (5)
  1. SOVALDI [Suspect]
     Indication: HEPATITIS C
     Dosage: 400 MG, UNK
     Route: 065
     Dates: start: 201403
  2. PEGASYS [Concomitant]
  3. RIBAVIRIN [Concomitant]
  4. TYLENOL                            /00020001/ [Concomitant]
  5. IBUPROFEN [Concomitant]

REACTIONS (2)
  - Mobility decreased [Unknown]
  - Arthralgia [Unknown]
